FAERS Safety Report 8297066-8 (Version None)
Quarter: 2012Q2

REPORT INFORMATION
  Report Type: 
  Country: None (occurrence: None)
  Receive Date: 20120416
  Receipt Date: 20120409
  Transmission Date: 20120825
  Serious: Yes (Disabling)
  Sender: FDA-Public Use
  Company Number: 2012SP019099

PATIENT
  Age: 35 Year
  Sex: Male

DRUGS (1)
  1. SAPHRIS [Suspect]
     Indication: SCHIZOPHRENIA, UNDIFFERENTIATED TYPE
     Dosage: 5 MG; SL, 10 MG; SL, 5 ML; SL
     Route: 060

REACTIONS (4)
  - FALL [None]
  - GAIT DISTURBANCE [None]
  - ATAXIA [None]
  - BALANCE DISORDER [None]
